FAERS Safety Report 5550255-5 (Version None)
Quarter: 2007Q4

REPORT INFORMATION
  Report Type: 
  Country: None (occurrence: None)
  Receive Date: 20071210
  Receipt Date: 20071127
  Transmission Date: 20080405
  Serious: No
  Sender: FDA-Public Use
  Company Number: 019634

PATIENT
  Age: 24 Year
  Sex: Female

DRUGS (2)
  1. CLARAVIS [Suspect]
     Dosage: 40 MG,BID,ORAL
     Route: 048
     Dates: start: 20070406, end: 20070608
  2. CLARAVIS [Suspect]
     Dosage: 40 MG,BID,ORAL
     Route: 048
     Dates: start: 20070906, end: 20071009

REACTIONS (1)
  - PREGNANCY TEST FALSE POSITIVE [None]
